FAERS Safety Report 5527488-7 (Version None)
Quarter: 2007Q4

REPORT INFORMATION
  Report Type: 
  Country: None (occurrence: None)
  Receive Date: 20071128
  Receipt Date: 20071119
  Transmission Date: 20080405
  Serious: Yes (Other)
  Sender: FDA-Public Use
  Company Number: PHHO2006US17543

PATIENT
  Age: 49 Year
  Sex: Male
  Weight: 91.5 kg

DRUGS (6)
  1. VITAMIN D [Concomitant]
  2. CALCIUM [Concomitant]
  3. ZOLEDRONIC ACID [Suspect]
     Indication: METASTASES TO BONE
     Dosage: 4MG EVERY 3-4 WEEKS
     Route: 042
     Dates: start: 20050127, end: 20060201
  4. CYTOXAN [Concomitant]
  5. VINCRISTINE [Concomitant]
  6. DECADRON [Concomitant]

REACTIONS (9)
  - BONE LESION [None]
  - DENTAL CARIES [None]
  - ERYTHEMA [None]
  - OSTEOMYELITIS [None]
  - OSTEONECROSIS [None]
  - PAIN IN JAW [None]
  - SOFT TISSUE INFECTION [None]
  - SWELLING [None]
  - TOOTH EXTRACTION [None]
